FAERS Safety Report 6599212-0 (Version None)
Quarter: 2010Q1

REPORT INFORMATION
  Report Type: 
  Country: None (occurrence: None)
  Receive Date: 20100224
  Receipt Date: 20100212
  Transmission Date: 20100710
  Serious: Yes (Hospitalization)
  Sender: FDA-Public Use
  Company Number: PHHY2010JP08475

PATIENT

DRUGS (4)
  1. DIOVAN [Suspect]
     Dosage: 160 MG DAILY
     Route: 048
  2. FLUITRAN [Concomitant]
     Route: 048
  3. CALBLOCK [Concomitant]
     Dosage: 8 MG, UNK
     Route: 048
  4. MAINTATE [Concomitant]
     Route: 048

REACTIONS (2)
  - CHOLELITHIASIS [None]
  - JAUNDICE [None]
